FAERS Safety Report 6610110-6 (Version None)
Quarter: 2010Q1

REPORT INFORMATION
  Report Type: 
  Country: None (occurrence: None)
  Receive Date: 20100302
  Receipt Date: 20100218
  Transmission Date: 20100710
  Serious: Yes (Hospitalization)
  Sender: FDA-Public Use
  Company Number: JP-PFIZER INC-2010025315

PATIENT
  Age: 62 Year
  Sex: Female

DRUGS (10)
  1. CELECOX [Suspect]
     Dosage: 100 MG, 2X/DAY
     Route: 048
  2. SOLANTAL [Suspect]
     Indication: UPPER RESPIRATORY TRACT INFECTION
     Dosage: 100 MG, 3X/DAY
     Route: 048
     Dates: start: 20100217
  3. MUCOSTA [Concomitant]
  4. MYONAL [Concomitant]
  5. NEUROTROPIN [Concomitant]
  6. PRORENAL [Concomitant]
  7. ANPLAG [Concomitant]
  8. DASEN [Concomitant]
     Indication: UPPER RESPIRATORY TRACT INFECTION
  9. FLAVERIC [Concomitant]
     Indication: UPPER RESPIRATORY TRACT INFECTION
  10. CLARITIN [Concomitant]
     Indication: RHINITIS

REACTIONS (4)
  - BODY TEMPERATURE DECREASED [None]
  - CHILLS [None]
  - PALPITATIONS [None]
  - TREMOR [None]
